FAERS Safety Report 10467784 (Version 2)
Quarter: 2014Q3

REPORT INFORMATION
  Report Type: Spontaneous
  Country: FR (occurrence: FR)
  Receive Date: 20140922
  Receipt Date: 20140922
  Transmission Date: 20150326
  Serious: Yes (Other)
  Sender: FDA-Public Use
  Company Number: FR-ASTELLAS-2014EU012502

PATIENT
  Age: 54 Year
  Sex: Male

DRUGS (7)
  1. XTANDI [Suspect]
     Active Substance: ENZALUTAMIDE
     Dosage: 4 DF DAILY
     Route: 048
  2. DECAPEPTYL [Concomitant]
     Active Substance: TRIPTORELIN ACETATE
     Indication: PROSTATE CANCER
     Dosage: UNK, UNKNOWN FREQ.
     Route: 065
  3. XTANDI [Suspect]
     Active Substance: ENZALUTAMIDE
     Dosage: 3 DF DAILY DURING 2 DAYS
     Route: 048
  4. XTANDI [Suspect]
     Active Substance: ENZALUTAMIDE
     Dosage: UNK, UNKNOWN FREQ.
     Route: 048
  5. DECAPEPTYL [Concomitant]
     Active Substance: TRIPTORELIN ACETATE
     Indication: BLOOD CHOLESTEROL
  6. XTANDI [Suspect]
     Active Substance: ENZALUTAMIDE
     Indication: PROSTATE CANCER
     Dosage: 2 DF DAILY DURING TWO DAYS
     Route: 048
     Dates: start: 201407
  7. DECAPEPTYL [Concomitant]
     Active Substance: TRIPTORELIN ACETATE
     Indication: TENSION

REACTIONS (5)
  - Intentional product misuse [Unknown]
  - Abnormal faeces [Unknown]
  - Fatigue [Not Recovered/Not Resolved]
  - Abdominal pain [Unknown]
  - Blood potassium decreased [Unknown]
